FAERS Safety Report 8759994 (Version 1)
Quarter: 2012Q4

REPORT INFORMATION
  Report Type: Report from Study
  Country: US (occurrence: US)
  Receive Date: 20120829
  Receipt Date: 20120829
  Transmission Date: 20130627
  Serious: Yes (Other)
  Sender: FDA-Public Use
  Company Number: US-ROCHE-1104013

PATIENT
  Age: 65 Year
  Sex: Female

DRUGS (9)
  1. ROACTEMRA [Suspect]
     Indication: RHEUMATOID ARTHRITIS
     Dosage: last dose prior to SAE was taken on 25/Jul/2012
     Route: 042
  2. PLAQUENIL [Concomitant]
  3. CALCIUM [Concomitant]
  4. MILK THISTLE [Concomitant]
  5. MELOXICAM [Concomitant]
     Route: 048
  6. PREDNISONE [Concomitant]
     Route: 048
  7. TYLENOL [Concomitant]
  8. B-12 DOTS [Concomitant]
  9. ACTEMRA [Concomitant]
     Dosage: 80 MG/4 ML
     Route: 042

REACTIONS (3)
  - Foot fracture [Unknown]
  - Foot fracture [Unknown]
  - Herpes zoster [Unknown]
